FAERS Safety Report 19992288 (Version 1)
Quarter: 2021Q4

REPORT INFORMATION
  Report Type: Spontaneous
  Country: US (occurrence: US)
  Receive Date: 20211026
  Receipt Date: 20211026
  Transmission Date: 20220304
  Serious: Yes (Other)
  Sender: FDA-Public Use
  Company Number: US-AMGEN-USASP2021164808

PATIENT
  Age: 69 Year
  Sex: Female

DRUGS (2)
  1. APREMILAST [Suspect]
     Active Substance: APREMILAST
     Indication: Psoriasis
     Dosage: UNK
     Route: 065
  2. TILDRAKIZUMAB [Suspect]
     Active Substance: TILDRAKIZUMAB
     Indication: Palmoplantar pustulosis
     Dosage: UNK
     Route: 065

REACTIONS (6)
  - Lung neoplasm malignant [Unknown]
  - Palmoplantar pustulosis [Unknown]
  - Depression [Unknown]
  - Therapeutic product effect incomplete [Unknown]
  - Abnormal loss of weight [Unknown]
  - Nausea [Unknown]
